FAERS Safety Report 25534870 (Version 1)
Quarter: 2025Q3

REPORT INFORMATION
  Report Type: Spontaneous
  Country: US (occurrence: US)
  Receive Date: 20250709
  Receipt Date: 20250709
  Transmission Date: 20251021
  Serious: No
  Sender: SANOFI AVENTIS
  Company Number: US-SA-2025SA192957

PATIENT
  Age: 49 Year
  Sex: Female
  Weight: 4.55 kg

DRUGS (1)
  1. DUPIXENT [Suspect]
     Active Substance: DUPILUMAB
     Indication: Nasal polyps
     Route: 058
     Dates: start: 20250403, end: 20250615

REACTIONS (8)
  - Paranasal sinus discomfort [Unknown]
  - Condition aggravated [Unknown]
  - Eye pain [Unknown]
  - Oral pruritus [Unknown]
  - Candida infection [Unknown]
  - Dry mouth [Unknown]
  - Vulvovaginal dryness [Unknown]
  - Oropharyngeal pain [Unknown]

NARRATIVE: CASE EVENT DATE: 20250101
